FAERS Safety Report 8531159-2 (Version None)
Quarter: 2012Q3

REPORT INFORMATION
  Report Type: 
  Country: None (occurrence: None)
  Receive Date: 20120723
  Receipt Date: 20120717
  Transmission Date: 20120928
  Serious: Yes (Hospitalization)
  Sender: FDA-Public Use
  Company Number: IT-ASTRAZENECA-2012SE05275

PATIENT
  Age: 22326 Day
  Sex: Female

DRUGS (2)
  1. PREDNISONE TAB [Concomitant]
     Dosage: 1/2 TABLET ONCE A DAY
     Route: 048
     Dates: start: 20110101
  2. ZD6474 [Suspect]
     Indication: BILIARY CANCER METASTATIC
     Route: 048
     Dates: start: 20111229, end: 20120125

REACTIONS (1)
  - POSTERIOR REVERSIBLE ENCEPHALOPATHY SYNDROME [None]
